FAERS Safety Report 8504203-6 (Version None)
Quarter: 2012Q3

REPORT INFORMATION
  Report Type: 
  Country: None (occurrence: None)
  Receive Date: 20120711
  Receipt Date: 20120703
  Transmission Date: 20120928
  Serious: Yes (Hospitalization)
  Sender: FDA-Public Use
  Company Number: NZ-VERTEX PHARMACEUTICALS INC.-000000000000000989

PATIENT
  Sex: Male
  Weight: 73 kg

DRUGS (8)
  1. PEGINTERFERON ALFA-2A [Concomitant]
     Indication: HEPATITIS C
     Dates: start: 20120510, end: 20120614
  2. GLUCOSAMINE [Concomitant]
     Indication: DIABETES MELLITUS
     Route: 048
  3. TELAPREVIR [Suspect]
     Indication: HEPATITIS C
     Dosage: DOSAGE FORM: TABLET
     Route: 048
     Dates: start: 20120510, end: 20120613
  4. METFORMIN HCL [Concomitant]
     Indication: DIABETES MELLITUS
     Route: 048
  5. NOVORAPID [Concomitant]
     Indication: DIABETES MELLITUS
     Route: 058
  6. PROTAPHANE [Concomitant]
     Indication: DIABETES MELLITUS
     Route: 058
  7. MULTI-VITAMINS [Concomitant]
     Indication: PROPHYLAXIS
     Dosage: DOSAGE FORM: TABLET
     Route: 048
  8. RIBAVIRIN [Concomitant]
     Indication: HEPATITIS C
     Route: 048
     Dates: start: 20120510, end: 20120612

REACTIONS (2)
  - ANAEMIA [None]
  - PYREXIA [None]
